FAERS Safety Report 13335648 (Version 1)
Quarter: 2017Q1

REPORT INFORMATION
  Report Type: Spontaneous
  Country: ES (occurrence: ES)
  Receive Date: 20170314
  Receipt Date: 20170314
  Transmission Date: 20170428
  Serious: Yes (Other)
  Sender: FDA-Public Use
  Company Number: ES-MYLANLABS-2017M1015379

PATIENT

DRUGS (4)
  1. LIDOCAINE. [Suspect]
     Active Substance: LIDOCAINE
     Indication: LOCAL ANAESTHESIA
     Dosage: 20 ML OF A 0.5% LEVOBUPIVACAINE + 0.5% LIDOCAINE MIXTURE
     Route: 013
  2. FENTANYL. [Concomitant]
     Active Substance: FENTANYL
     Indication: PREMEDICATION
     Dosage: 50 MCG
     Route: 065
  3. MIDAZOLAM [Concomitant]
     Active Substance: MIDAZOLAM HYDROCHLORIDE
     Indication: PREMEDICATION
     Dosage: 1.5 MG
     Route: 065
  4. LEVOBUPIVACAINE [Suspect]
     Active Substance: LEVOBUPIVACAINE
     Indication: LOCAL ANAESTHESIA
     Dosage: 20 ML OF A 0.5% LEVOBUPIVACAINE + 0.5% LIDOCAINE MIXTURE
     Route: 013

REACTIONS (8)
  - Toxicity to various agents [Recovered/Resolved]
  - Generalised tonic-clonic seizure [Recovered/Resolved]
  - Hypertension [Recovered/Resolved]
  - Agitation [Recovered/Resolved]
  - Loss of consciousness [Recovered/Resolved]
  - Tachypnoea [Recovered/Resolved]
  - Sinus tachycardia [Recovered/Resolved]
  - Dysarthria [Recovered/Resolved]
